FAERS Safety Report 8272809-8 (Version None)
Quarter: 2012Q2

REPORT INFORMATION
  Report Type: 
  Country: None (occurrence: None)
  Receive Date: 20120411
  Receipt Date: 20120330
  Transmission Date: 20120825
  Serious: No
  Sender: FDA-Public Use
  Company Number: US-BIOGENIDEC-2011BI034356

PATIENT
  Sex: Female

DRUGS (1)
  1. TYSABRI [Suspect]
     Indication: MULTIPLE SCLEROSIS
     Route: 042
     Dates: start: 20071227

REACTIONS (6)
  - ASTHENIA [None]
  - URINARY TRACT INFECTION PSEUDOMONAL [None]
  - LETHARGY [None]
  - TOOTH INFECTION [None]
  - TOOTH IMPACTED [None]
  - RESPIRATORY TRACT INFECTION [None]
